FAERS Safety Report 9978276 (Version 1)
Quarter: 2014Q1

REPORT INFORMATION
  Report Type: Report from Study
  Country: US (occurrence: US)
  Receive Date: 20140306
  Receipt Date: 20140306
  Transmission Date: 20141002
  Serious: No
  Sender: FDA-Public Use
  Company Number: US-ABBVIE-13P-163-1170733-00

PATIENT
  Age: 51 Year
  Sex: Female
  Weight: 76.27 kg

DRUGS (5)
  1. HUMIRA [Suspect]
     Indication: PSORIASIS
     Dates: start: 201308, end: 201308
  2. HUMIRA [Suspect]
     Dates: start: 201308
  3. DERMA SMOOTHE [Concomitant]
     Indication: PSORIASIS
     Route: 061
  4. UNKNOWN MEDICATION [Concomitant]
     Indication: PSORIASIS
     Route: 061
  5. NICORETTE [Concomitant]
     Indication: PRODUCT USED FOR UNKNOWN INDICATION
     Dosage: FOR 8 YEARS

REACTIONS (9)
  - Campbell de Morgan spots [Not Recovered/Not Resolved]
  - Pruritus [Not Recovered/Not Resolved]
  - Melanocytic naevus [Not Recovered/Not Resolved]
  - Pain of skin [Not Recovered/Not Resolved]
  - Skin exfoliation [Not Recovered/Not Resolved]
  - Nausea [Recovered/Resolved]
  - Psoriasis [Not Recovered/Not Resolved]
  - Therapeutic response unexpected [Not Recovered/Not Resolved]
  - Fatigue [Not Recovered/Not Resolved]
